FAERS Safety Report 23566224 (Version 1)
Quarter: 2024Q1

REPORT INFORMATION
  Report Type: Spontaneous
  Country: JP (occurrence: JP)
  Receive Date: 20240226
  Receipt Date: 20240226
  Transmission Date: 20240409
  Serious: Yes (Other)
  Sender: FDA-Public Use
  Company Number: JP-MLMSERVICE-20240207-4820553-1

PATIENT
  Age: 36 Year
  Sex: Male

DRUGS (5)
  1. RISPERIDONE [Suspect]
     Active Substance: RISPERIDONE
     Indication: Anxiety
     Dosage: 2 MG
  2. GUANFACINE [Concomitant]
     Active Substance: GUANFACINE
     Indication: Irritability
     Dosage: 2 MG, ONCE PER DAY
  3. GUANFACINE [Concomitant]
     Active Substance: GUANFACINE
     Dosage: 4 MG, ONCE PER DAY
  4. GUANFACINE [Concomitant]
     Active Substance: GUANFACINE
     Dosage: 3 MG, ONCE PER DAY
  5. GUANFACINE [Concomitant]
     Active Substance: GUANFACINE
     Dosage: 5 MG, ONCE PER DAY

REACTIONS (1)
  - Depressive symptom [Unknown]
